FAERS Safety Report 24241255 (Version 1)
Quarter: 2024Q3

REPORT INFORMATION
  Report Type: Spontaneous
  Country: US (occurrence: US)
  Receive Date: 20240823
  Receipt Date: 20240823
  Transmission Date: 20241016
  Serious: No
  Sender: GE HEALTHCARE
  Company Number: US-GE HEALTHCARE-2024CSU005924

PATIENT
  Age: 47 Year
  Sex: Female
  Weight: 82.54 kg

DRUGS (1)
  1. OMNIPAQUE [Suspect]
     Active Substance: IOHEXOL
     Indication: Computerised tomogram abdomen
     Dosage: 100 ML, TOTAL
     Route: 065
     Dates: start: 20240529, end: 20240529

REACTIONS (2)
  - Sneezing [Recovering/Resolving]
  - Ear pruritus [Recovering/Resolving]

NARRATIVE: CASE EVENT DATE: 20240529
